FAERS Safety Report 8588720-9 (Version None)
Quarter: 2012Q3

REPORT INFORMATION
  Report Type: 
  Country: None (occurrence: None)
  Receive Date: 20120803
  Receipt Date: 20120803
  Transmission Date: 20120928
  Serious: No
  Sender: FDA-Public Use
  Company Number: None

PATIENT
  Sex: Male
  Weight: 68 kg

DRUGS (1)
  1. INTRON A [Suspect]
     Dosage: 17 MU
     Dates: end: 20120725

REACTIONS (2)
  - BLOOD POTASSIUM DECREASED [None]
  - BLOOD PHOSPHORUS DECREASED [None]
